FAERS Safety Report 7504969-8 (Version None)
Quarter: 2011Q2

REPORT INFORMATION
  Report Type: 
  Country: None (occurrence: None)
  Receive Date: 20110526
  Receipt Date: 20110516
  Transmission Date: 20111010
  Serious: No
  Sender: FDA-Public Use
  Company Number: US-BIOGENIDEC-2010BI044312

PATIENT
  Age: 53 Year
  Sex: Female

DRUGS (2)
  1. TYSABRI [Suspect]
     Indication: MULTIPLE SCLEROSIS
     Route: 042
     Dates: start: 20101014, end: 20110331
  2. TYSABRI [Suspect]
     Route: 042
     Dates: start: 20110512

REACTIONS (4)
  - INFUSION SITE HAEMATOMA [None]
  - ASTHENIA [None]
  - FALL [None]
  - CYST [None]
